FAERS Safety Report 5911935-2 (Version None)
Quarter: 2008Q4

REPORT INFORMATION
  Report Type: 
  Country: None (occurrence: None)
  Receive Date: 20081008
  Receipt Date: 20080929
  Transmission Date: 20090506
  Serious: Yes (Other)
  Sender: FDA-Public Use
  Company Number: PHEH2008US08707

PATIENT
  Age: 57 Year
  Sex: Female

DRUGS (3)
  1. FEMARA [Suspect]
     Indication: BREAST CANCER METASTATIC
  2. RADIATION THERAPY [Concomitant]
  3. XANAX [Concomitant]

REACTIONS (6)
  - ARTIFICIAL CROWN PROCEDURE [None]
  - DENTAL CARE [None]
  - DRY MOUTH [None]
  - ENDODONTIC PROCEDURE [None]
  - TEETH BRITTLE [None]
  - TOOTH EXTRACTION [None]
